FAERS Safety Report 10065066 (Version 1)
Quarter: 2014Q2

REPORT INFORMATION
  Report Type: Spontaneous
  Country: AU (occurrence: AU)
  Receive Date: 20140408
  Receipt Date: 20140408
  Transmission Date: 20141212
  Serious: Yes (Other)
  Sender: FDA-Public Use
  Company Number: AU-BAYER-2014-046682

PATIENT
  Sex: Female

DRUGS (5)
  1. NAPROGESIC [Suspect]
     Indication: DYSMENORRHOEA
     Dosage: 2 DF, PRN
  2. NAPROGESIC [Suspect]
     Indication: DYSMENORRHOEA
     Dosage: 1 DF, UNK
  3. ISONIAZID [Concomitant]
     Indication: TUBERCULOSIS
     Dosage: UNK
  4. RIFAMPICIN [Concomitant]
     Indication: TUBERCULOSIS
  5. PYRAZINAMIDE [Concomitant]
     Indication: TUBERCULOSIS

REACTIONS (4)
  - Menstrual disorder [None]
  - Menorrhagia [Recovering/Resolving]
  - Dizziness [None]
  - Menstruation delayed [None]
